FAERS Safety Report 25119959 (Version 1)
Quarter: 2025Q1

REPORT INFORMATION
  Report Type: Spontaneous
  Country: NL (occurrence: NL)
  Receive Date: 20250325
  Receipt Date: 20250325
  Transmission Date: 20250409
  Serious: Yes (Hospitalization)
  Sender: SANDOZ
  Company Number: NL-TEVA-VS-3305274

PATIENT
  Age: 82 Year
  Sex: Female

DRUGS (2)
  1. ACETAMINOPHEN [Suspect]
     Active Substance: ACETAMINOPHEN
     Indication: Fracture
     Dosage: 1000 MG, QD (0.25)
     Route: 065
  2. ACETAMINOPHEN [Suspect]
     Active Substance: ACETAMINOPHEN
     Indication: Joint dislocation

REACTIONS (11)
  - Dry mouth [Unknown]
  - Cough [Unknown]
  - Dyspnoea [Unknown]
  - Diarrhoea [Unknown]
  - Anxiety [Unknown]
  - Nervousness [Unknown]
  - Oropharyngeal discomfort [Unknown]
  - Decreased appetite [Unknown]
  - Salivary hyposecretion [Unknown]
  - Confusional state [Unknown]
  - Nausea [Unknown]
